FAERS Safety Report 13918393 (Version 1)
Quarter: 2017Q3

REPORT INFORMATION
  Report Type: Report from Study
  Country: IT (occurrence: IT)
  Receive Date: 20170829
  Receipt Date: 20170829
  Transmission Date: 20171127
  Serious: Yes (Other)
  Sender: FDA-Public Use
  Company Number: IT-GILEAD-2017-0289834

PATIENT
  Age: 53 Year
  Sex: Male

DRUGS (16)
  1. RIFAXIMINA [Concomitant]
     Active Substance: RIFAXIMIN
  2. CALCIUM [Concomitant]
     Active Substance: CALCIUM
  3. RIBAVIRIN. [Suspect]
     Active Substance: RIBAVIRIN
     Indication: CHRONIC HEPATITIS C
     Dosage: 600 MG, QD
     Route: 065
     Dates: start: 20130611
  4. LANSOPRAZOLO [Concomitant]
     Active Substance: LANSOPRAZOLE
  5. LACTITOL [Concomitant]
     Active Substance: LACTITOL
  6. ALLOPURINOL. [Concomitant]
     Active Substance: ALLOPURINOL
  7. CANRENOATE DE POTASSIUM [Concomitant]
  8. FUROSEMIDE. [Concomitant]
     Active Substance: FUROSEMIDE
  9. GRANULOKINE [Concomitant]
     Active Substance: FILGRASTIM
  10. ALBUMIN [Concomitant]
     Active Substance: ALBUMIN HUMAN
  11. EPO                                /00909301/ [Concomitant]
     Active Substance: ERYTHROPOIETIN
  12. VITAMIN K [Concomitant]
     Active Substance: PHYTONADIONE
  13. SOFOSBUVIR [Suspect]
     Active Substance: SOFOSBUVIR
     Indication: CHRONIC HEPATITIS C
     Dosage: 400 MG, QD
     Route: 065
     Dates: start: 20130611, end: 20131208
  14. NEOHEPATECT [Concomitant]
  15. VITAMIN D                          /00107901/ [Concomitant]
     Active Substance: ERGOCALCIFEROL
  16. TACROLIMUS. [Concomitant]
     Active Substance: TACROLIMUS

REACTIONS (5)
  - Gamma-glutamyltransferase increased [Unknown]
  - Transaminases increased [Unknown]
  - Hepatocellular carcinoma [Unknown]
  - Drug ineffective [Unknown]
  - Hepatitis C [Unknown]

NARRATIVE: CASE EVENT DATE: 20131218
